FAERS Safety Report 24917247 (Version 3)
Quarter: 2025Q1

REPORT INFORMATION
  Report Type: Spontaneous
  Country: US (occurrence: US)
  Receive Date: 20250203
  Receipt Date: 20250228
  Transmission Date: 20250408
  Serious: No
  Sender: JOHNSON AND JOHNSON
  Company Number: US-JNJFOC-20241214342

PATIENT
  Age: 52 Year
  Sex: Male

DRUGS (3)
  1. TREMFYA [Suspect]
     Active Substance: GUSELKUMAB
     Indication: Psoriasis
     Dosage: LAST ADMINISTRATION: 30-JUL-2024
     Route: 065
     Dates: start: 202209
  2. TREMFYA [Suspect]
     Active Substance: GUSELKUMAB
     Dosage: LAST ADMINISTRATION: 30-JUL-2024
     Route: 065
     Dates: start: 202209
  3. TREMFYA [Suspect]
     Active Substance: GUSELKUMAB
     Dosage: LAST ADMINISTRATION: 30-JUL-2024
     Route: 065
     Dates: start: 20221012

REACTIONS (5)
  - Product dose omission issue [Unknown]
  - Underdose [Unknown]
  - Injury associated with device [Unknown]
  - Device issue [Unknown]
  - Device leakage [Unknown]

NARRATIVE: CASE EVENT DATE: 20241129
